FAERS Safety Report 16846968 (Version 1)
Quarter: 2019Q3

REPORT INFORMATION
  Report Type: Spontaneous
  Country: US (occurrence: US)
  Receive Date: 20190924
  Receipt Date: 20190924
  Transmission Date: 20191005
  Serious: No
  Sender: FDA-Public Use
  Company Number: US-ASSERTIO THERAPEUTICS, INC.-US-2019DEP000430

PATIENT
  Sex: Female
  Weight: 92.63 kg

DRUGS (4)
  1. GRALISE [Suspect]
     Active Substance: GABAPENTIN
     Indication: SEIZURE
  2. GRALISE [Suspect]
     Active Substance: GABAPENTIN
     Indication: NEURALGIA
  3. GRALISE [Suspect]
     Active Substance: GABAPENTIN
     Indication: FIBROMYALGIA
     Dosage: 1800 MG, QD
     Dates: start: 20170620, end: 2017
  4. GRALISE [Suspect]
     Active Substance: GABAPENTIN
     Indication: RHEUMATOID ARTHRITIS
     Dosage: 1200 MG, QD
     Dates: start: 2017, end: 201708

REACTIONS (3)
  - Drug intolerance [Recovered/Resolved]
  - Product use in unapproved indication [Unknown]
  - Drug titration error [Unknown]

NARRATIVE: CASE EVENT DATE: 2017
